FAERS Safety Report 5275896-4 (Version None)
Quarter: 2007Q1

REPORT INFORMATION
  Report Type: 
  Country: None (occurrence: None)
  Receive Date: 20070326
  Receipt Date: 20070314
  Transmission Date: 20070707
  Serious: Yes (Life-Threatening, Hospitalization)
  Sender: FDA-Public Use
  Company Number: JP-MERCK-0703USA03594

PATIENT
  Age: 15 Year
  Sex: Male

DRUGS (9)
  1. DACTINOMYCIN [Suspect]
     Indication: UNDIFFERENTIATED SARCOMA
     Route: 042
  2. DACTINOMYCIN [Suspect]
     Route: 042
  3. ONCOVIN [Concomitant]
     Indication: UNDIFFERENTIATED SARCOMA
     Route: 042
  4. ONCOVIN [Concomitant]
     Route: 042
  5. ENDOXAN [Concomitant]
     Indication: UNDIFFERENTIATED SARCOMA
     Route: 042
  6. ENDOXAN [Concomitant]
     Route: 042
  7. TACROLIMUS [Concomitant]
     Indication: IMMUNOSUPPRESSANT DRUG THERAPY
     Route: 065
  8. HORMONES (UNSPECIFIED) [Concomitant]
     Indication: IMMUNOSUPPRESSANT DRUG THERAPY
     Route: 065
  9. CYCLOSPORINE [Suspect]
     Route: 065

REACTIONS (2)
  - SEPSIS [None]
  - UNDIFFERENTIATED SARCOMA [None]
